FAERS Safety Report 10739702 (Version 1)
Quarter: 2015Q1

REPORT INFORMATION
  Report Type: Spontaneous
  Country: US (occurrence: US)
  Receive Date: 20150127
  Receipt Date: 20150127
  Transmission Date: 20150721
  Serious: Yes (Life-Threatening, Hospitalization)
  Sender: FDA-Public Use
  Company Number: US-JNJFOC-20150110196

PATIENT
  Age: 41 Year
  Sex: Male

DRUGS (2)
  1. SLEEPING PILL NOS [Suspect]
     Active Substance: UNSPECIFIED INGREDIENT
     Indication: SUICIDE ATTEMPT
     Route: 065
     Dates: start: 20060305
  2. TYLENOL PM EXTRA STRENGTH [Suspect]
     Active Substance: ACETAMINOPHEN\DIPHENHYDRAMINE HYDROCHLORIDE
     Indication: SUICIDE ATTEMPT
     Route: 048
     Dates: start: 20060305

REACTIONS (4)
  - Irritability [Recovering/Resolving]
  - Agitation [Recovering/Resolving]
  - Transaminases increased [Recovering/Resolving]
  - Overdose [Recovering/Resolving]
